FAERS Safety Report 7625592 (Version 5)
Quarter: 2015Q2

REPORT INFORMATION
  Report Type: Report from Study
  Country: CA (occurrence: CA)
  Receive Date: 20101012
  Receipt Date: 20150416
  Transmission Date: 20150821
  Serious: Yes (Death, Hospitalization)
  Sender: FDA-Public Use
  Company Number: PHHO2010CA14932

PATIENT
  Age: 79 Year
  Sex: Male
  Weight: 65.4 kg

DRUGS (1)
  1. STI571 [Suspect]
     Active Substance: IMATINIB MESYLATE
     Indication: GASTROINTESTINAL STROMAL TUMOUR
     Dosage: 400 MG
     Route: 048
     Dates: start: 20100923, end: 20100928

REACTIONS (7)
  - Faecaloma [Recovered/Resolved]
  - Supraventricular tachycardia [Not Recovered/Not Resolved]
  - Abdominal pain [Recovered/Resolved]
  - Vomiting [Recovered/Resolved]
  - Multi-organ failure [Fatal]
  - Malignant neoplasm progression [Not Recovered/Not Resolved]
  - Nausea [Recovered/Resolved]

NARRATIVE: CASE EVENT DATE: 20100927
